FAERS Safety Report 17622605 (Version 1)
Quarter: 2020Q2

REPORT INFORMATION
  Report Type: Spontaneous
  Country: CA (occurrence: CA)
  Receive Date: 20200403
  Receipt Date: 20200403
  Transmission Date: 20200713
  Serious: Yes (Other)
  Sender: FDA-Public Use
  Company Number: CA-PFIZER INC-2020137346

PATIENT
  Age: 3 Year
  Sex: Female
  Weight: 13 kg

DRUGS (9)
  1. DEXAMETHASONE. [Concomitant]
     Active Substance: DEXAMETHASONE
  2. METHOTREXATE. [Concomitant]
     Active Substance: METHOTREXATE
  3. METHYLPREDNISOLONE. [Concomitant]
     Active Substance: METHYLPREDNISOLONE
  4. CYTARABINE. [Concomitant]
     Active Substance: CYTARABINE
  5. LIPOSOMAL DOXORUBICIN HCL [Concomitant]
     Active Substance: DOXORUBICIN HYDROCHLORIDE
  6. MERCAPTOPURINE. [Concomitant]
     Active Substance: MERCAPTOPURINE
  7. PREDNISONE. [Concomitant]
     Active Substance: PREDNISONE
  8. PEG-L-ASPARAGINASE [Concomitant]
     Active Substance: PEGASPARGASE
  9. VINCRISTINE SULFATE. [Suspect]
     Active Substance: VINCRISTINE SULFATE
     Dosage: 2 MG/M2, UNK
     Route: 042

REACTIONS (11)
  - Arthralgia [Unknown]
  - Back pain [Unknown]
  - Gait disturbance [Unknown]
  - Muscular weakness [Unknown]
  - Gait inability [Unknown]
  - Neuropathy peripheral [Unknown]
  - Pain in extremity [Unknown]
  - Fall [Unknown]
  - Mobility decreased [Unknown]
  - Ligament sprain [Unknown]
  - Pain in jaw [Unknown]
